FAERS Safety Report 9606637 (Version 2)
Quarter: 2013Q4

REPORT INFORMATION
  Report Type: Spontaneous
  Country: US (occurrence: US)
  Receive Date: 20131008
  Receipt Date: 20131008
  Transmission Date: 20140711
  Serious: No
  Sender: FDA-Public Use
  Company Number: US-AMGEN-USASP2013056595

PATIENT
  Age: 66 Year
  Sex: Female
  Weight: 48.8 kg

DRUGS (6)
  1. PROLIA [Suspect]
     Indication: OSTEOPOROSIS
     Route: 065
  2. ADALAT CC [Concomitant]
     Dosage: 30 MG, QD
     Route: 048
  3. CRESTOR [Concomitant]
     Dosage: 20 MG, QD
     Route: 048
  4. LISINOPRIL [Concomitant]
     Dosage: 5 MG, QD
     Route: 048
     Dates: start: 20130430
  5. MULTIPLE VITAMINS [Concomitant]
     Dosage: UNK UNK, QD
     Route: 048
  6. NAPROSYN                           /00256201/ [Concomitant]
     Dosage: 500 MG, BID
     Route: 048
     Dates: start: 20111116

REACTIONS (3)
  - Muscle tightness [Unknown]
  - Sciatica [Unknown]
  - Musculoskeletal pain [Unknown]
